FAERS Safety Report 14776555 (Version 14)
Quarter: 2020Q3

REPORT INFORMATION
  Report Type: Report from Study
  Country: DE (occurrence: DE)
  Receive Date: 20180418
  Receipt Date: 20200827
  Transmission Date: 20201102
  Serious: Yes (Hospitalization)
  Sender: FDA-Public Use
  Company Number: PHHY2017DE037785

PATIENT
  Age: 55 Year
  Sex: Female
  Weight: 55 kg

DRUGS (29)
  1. AFINITOR [Suspect]
     Active Substance: EVEROLIMUS
     Indication: BREAST CANCER METASTATIC
     Dosage: 10 MG, QD (CUMULATIVE DOSE 780MG)
     Route: 048
     Dates: start: 20160523, end: 20160808
  2. PREDNISOLONE. [Suspect]
     Active Substance: PREDNISOLONE
     Dosage: 20 MG, QD (CUMULATIVE DOSE 480MG)
     Route: 065
     Dates: start: 20170213
  3. PREDNISOLONE. [Suspect]
     Active Substance: PREDNISOLONE
     Dosage: 20 MG, QD (1 IN 1 D)
     Route: 065
     Dates: start: 20170213
  4. PEGFILGRASTIM [Suspect]
     Active Substance: PEGFILGRASTIM
     Indication: B-CELL LYMPHOMA
     Dosage: DOSAGE FORM: UNSPECIFIED
     Route: 058
     Dates: start: 20171015, end: 20171015
  5. SIMVASTATIN. [Concomitant]
     Active Substance: SIMVASTATIN
     Indication: HYPERCHOLESTEROLAEMIA
     Dosage: 20 MG, QD (CUMULATIVE DOSE TO FIRST REACTION 300 MG)
     Route: 048
     Dates: start: 20171010
  6. EXEMESTANE. [Suspect]
     Active Substance: EXEMESTANE
     Indication: BREAST CANCER METASTATIC
     Dosage: 25 MG, QD (DOSAGE FORM: UNSPECIFIED, CUMULATIVE DOSE 7250 MG)
     Route: 048
     Dates: start: 20160523, end: 20170126
  7. PEGFILGRASTIM [Suspect]
     Active Substance: PEGFILGRASTIM
     Dosage: 6 MG, QD (1 IN 1 D)
     Route: 058
     Dates: start: 20171012, end: 20171012
  8. TAMSULOSIN [Concomitant]
     Active Substance: TAMSULOSIN
     Dosage: DAILY DOSE: 4 MG MILLIGRAM(S) EVERY DAY
     Route: 048
     Dates: start: 20171010
  9. DOXORUBICIN [Suspect]
     Active Substance: DOXORUBICIN
     Indication: B-CELL LYMPHOMA
     Dosage: 95 MG, QD (CUMULATIVE DOSE TO FIRST REACTION 95 MG)
     Route: 042
     Dates: start: 20171012, end: 20171012
  10. PREDNISOLONE. [Suspect]
     Active Substance: PREDNISOLONE
     Dosage: 20 MG, QD ( 1 IN 1 D)
     Route: 048
     Dates: start: 20171113
  11. CYCLOPHOSPHAMIDE. [Suspect]
     Active Substance: CYCLOPHOSPHAMIDE
     Indication: B-CELL LYMPHOMA
     Dosage: 1400 MG, QD
     Route: 042
     Dates: start: 20171012, end: 20171012
  12. AFINITOR [Suspect]
     Active Substance: EVEROLIMUS
     Indication: CHEMOTHERAPY MULTIPLE AGENTS SYSTEMIC
     Dosage: 10 MG, QD
     Route: 048
     Dates: start: 20160901, end: 20170126
  13. PREDNISOLONE. [Suspect]
     Active Substance: PREDNISOLONE
     Dosage: 20 MG, QD
     Route: 048
     Dates: start: 20171113
  14. PREDNISOLONE. [Suspect]
     Active Substance: PREDNISOLONE
     Dosage: 500 MG, QD (1 IN 1 D)
     Route: 048
     Dates: start: 20171012, end: 20171012
  15. MABTHERA [Suspect]
     Active Substance: RITUXIMAB
     Indication: B-CELL LYMPHOMA
     Dosage: DOSAGE FORM: UNSPECIFIED, CUMULATIVE DOSE 700 MG
     Route: 042
     Dates: start: 20171011, end: 20171011
  16. MABTHERA [Suspect]
     Active Substance: RITUXIMAB
     Dosage: 15400 MG, UNK
     Route: 042
  17. MABTHERA [Suspect]
     Active Substance: RITUXIMAB
     Dosage: 700 MG, QD (CUMULATIVE DOSE TO FIRST REACTION 700 MG)
     Route: 042
     Dates: start: 20171011, end: 20171011
  18. ASPIRIN. [Concomitant]
     Active Substance: ASPIRIN
     Indication: PROPHYLAXIS
     Dosage: DOSAGE FORM: UNSPECIFIED (1 IN 1 D)
     Route: 048
     Dates: start: 20171010
  19. ACETYLSALICYLIC ACID [Concomitant]
     Active Substance: ASPIRIN
     Indication: PROPHYLAXIS
     Dosage: 100 MG, QD
     Route: 048
     Dates: start: 20171010
  20. PREDNISOLONE. [Suspect]
     Active Substance: PREDNISOLONE
     Dosage: DOSAGE FORM: UNSPECIFIED
     Route: 048
     Dates: start: 20171012, end: 20171012
  21. PEGFILGRASTIM [Suspect]
     Active Substance: PEGFILGRASTIM
     Dosage: 6 MG, QD (1 IN 1 D)
     Route: 058
     Dates: start: 20171015, end: 20171015
  22. TAMSULOSIN [Concomitant]
     Active Substance: TAMSULOSIN
     Indication: BENIGN PROSTATIC HYPERPLASIA
     Dosage: 64 MG, QD (60+ 4 MG)
     Route: 048
     Dates: start: 20171010
  23. AFINITOR [Suspect]
     Active Substance: EVEROLIMUS
     Dosage: 10 MG, QD (CUMULATIVE DOSE TO FIRST REACTION WAS 2260 MG)
     Route: 048
     Dates: start: 20160901
  24. VINCRISTINE [Suspect]
     Active Substance: VINCRISTINE
     Indication: B-CELL LYMPHOMA
     Dosage: DOSAGE FORM: UNSPECIFIED, CUMULATIVE DOSE 3 MG
     Route: 042
     Dates: start: 20171012, end: 20171012
  25. PEGFILGRASTIM [Suspect]
     Active Substance: PEGFILGRASTIM
     Dosage: 6 MG, QD
     Route: 058
     Dates: start: 20171012, end: 20171012
  26. ZOPICLON [Concomitant]
     Active Substance: ZOPICLONE
     Indication: SLEEP DISORDER THERAPY
     Dosage: 7.5 MG, QD DOSAGE FORM: UNSPECIFIED  (1 IN 1 D)
     Route: 048
     Dates: start: 20171010
  27. PREDNISOLONE. [Suspect]
     Active Substance: PREDNISOLONE
     Dosage: 500 MG, QD (CUMULATIVE DOSE TO FIRST REACTION 500 MG)
     Route: 048
     Dates: start: 20171012, end: 20171012
  28. PREDNISOLON [Concomitant]
     Active Substance: PREDNISOLONE
     Indication: PRODUCT USED FOR UNKNOWN INDICATION
     Dosage: 20 MG, QD
     Route: 065
     Dates: start: 20170213
  29. PREDNISOLONE. [Suspect]
     Active Substance: PREDNISOLONE
     Indication: B-CELL LYMPHOMA
     Dosage: 20 MG, QD
     Route: 048
     Dates: start: 20170213

REACTIONS (5)
  - Off label use [Unknown]
  - Pneumonitis [Not Recovered/Not Resolved]
  - Pneumonia [Recovered/Resolved]
  - Dyspnoea [Not Recovered/Not Resolved]
  - Product use in unapproved indication [Unknown]

NARRATIVE: CASE EVENT DATE: 20171012
